FAERS Safety Report 6529231-1 (Version None)
Quarter: 2010Q1

REPORT INFORMATION
  Report Type: 
  Country: None (occurrence: None)
  Receive Date: 20100107
  Receipt Date: 20091229
  Transmission Date: 20100710
  Serious: Yes (Other)
  Sender: FDA-Public Use
  Company Number: MY-ROCHE-676168

PATIENT
  Sex: Male
  Weight: 2.5 kg

DRUGS (2)
  1. ALL-TRANS-RETINOIC ACID [Suspect]
     Indication: ACUTE PROMYELOCYTIC LEUKAEMIA
     Dosage: IN 3 DIVIDED DOSES
     Route: 064
  2. PREDNISOLONE [Concomitant]

REACTIONS (2)
  - FOETAL DISTRESS SYNDROME [None]
  - NORMAL NEWBORN [None]
